FAERS Safety Report 20936560 (Version 1)
Quarter: 2022Q2

REPORT INFORMATION
  Report Type: Report from Study
  Country: AU (occurrence: AU)
  Receive Date: 20220609
  Receipt Date: 20220609
  Transmission Date: 20220721
  Serious: Yes (Death, Other)
  Sender: FDA-Public Use
  Company Number: AU-SUN PHARMACEUTICAL INDUSTRIES LTD-2022RR-340108

PATIENT
  Age: 79 Year
  Sex: Male

DRUGS (11)
  1. MORPHINE [Suspect]
     Active Substance: MORPHINE
     Indication: Knee arthroplasty
     Dosage: 10 MILLIGRAM ONCE ONLY
     Route: 030
  2. MORPHINE [Suspect]
     Active Substance: MORPHINE
     Dosage: 0.03 MILLIGRAM/ML
     Route: 030
  3. MORPHINE [Suspect]
     Active Substance: MORPHINE
     Dosage: 10 MILLIGRAM, UNK
     Route: 030
  4. OXYCODONE [Suspect]
     Active Substance: OXYCODONE
     Indication: Knee arthroplasty
     Dosage: 20 MILLIGRAM, BID
     Route: 048
  5. OXYCODONE [Suspect]
     Active Substance: OXYCODONE
     Dosage: 0.1 MG/L, UNK
     Route: 048
  6. OXYCODONE [Suspect]
     Active Substance: OXYCODONE
     Dosage: 40 MILLIGRAM, UNK
     Route: 048
  7. OXYCODONE [Suspect]
     Active Substance: OXYCODONE
     Dosage: 2 DOSAGE FORM IR
     Route: 048
  8. OXYCODONE [Suspect]
     Active Substance: OXYCODONE
     Dosage: 20 MILLIGRAM/ 3 HOURS
     Route: 048
  9. TRAMADOL [Suspect]
     Active Substance: TRAMADOL
     Indication: Knee arthroplasty
     Dosage: 100 MILLIGRAM PRN
  10. TRAMADOL [Suspect]
     Active Substance: TRAMADOL
     Dosage: 1.1 MG/L, UNK
     Route: 065
  11. ROPIVACAINE [Suspect]
     Active Substance: ROPIVACAINE
     Indication: Knee arthroplasty
     Dosage: 46 MG/L
     Route: 065

REACTIONS (1)
  - Toxicity to various agents [Fatal]
